FAERS Safety Report 7942943-8 (Version None)
Quarter: 2011Q4

REPORT INFORMATION
  Report Type: 
  Country: None (occurrence: None)
  Receive Date: 20111128
  Receipt Date: 20111123
  Transmission Date: 20120403
  Serious: Yes (Hospitalization)
  Sender: FDA-Public Use
  Company Number: NL-MERCK-1111NLD00014

PATIENT
  Age: 48 Year
  Sex: Male

DRUGS (12)
  1. PYRIDOXINE HCL [Suspect]
     Route: 048
     Dates: start: 20111101, end: 20111101
  2. AMLODIPINE BESYLATE [Suspect]
     Route: 048
     Dates: start: 20111101, end: 20111101
  3. ALLOPURINOL [Concomitant]
     Route: 048
  4. LEVOTHYROXINE SODIUM [Concomitant]
     Route: 048
  5. COZAAR [Suspect]
     Route: 048
     Dates: start: 20111101, end: 20111101
  6. ALENDRONATE SODIUM [Concomitant]
     Route: 047
  7. ATENOLOL AND CHLORTHALIDONE [Suspect]
     Route: 048
     Dates: start: 20111101, end: 20111101
  8. OMEPRAZOLE [Concomitant]
     Route: 048
  9. LOPERAMIDE HYDROCHLORIDE [Concomitant]
     Route: 048
  10. DICLOFENAC SODIUM [Suspect]
     Route: 048
     Dates: start: 20111101, end: 20111101
  11. THIAMINE HCL [Suspect]
     Route: 048
     Dates: start: 20111101, end: 20111101
  12. CALCIUM CARBONATE [Concomitant]
     Route: 048

REACTIONS (8)
  - VENTRICULAR FIBRILLATION [None]
  - HYPOTENSION [None]
  - CONVULSION [None]
  - ACCIDENTAL OVERDOSE [None]
  - FALL [None]
  - VOMITING [None]
  - MALAISE [None]
  - CORONARY ARTERY STENOSIS [None]
